FAERS Safety Report 15602897 (Version 1)
Quarter: 2018Q4

REPORT INFORMATION
  Report Type: Spontaneous
  Country: US (occurrence: US)
  Receive Date: 20181109
  Receipt Date: 20181109
  Transmission Date: 20190205
  Serious: Yes (Other)
  Sender: FDA-Public Use
  Company Number: US-AMGEN-USASP2018084460

PATIENT
  Age: 26 Year
  Sex: Female

DRUGS (1)
  1. IVABRADINE [Suspect]
     Active Substance: IVABRADINE
     Indication: SINUS TACHYCARDIA
     Dosage: UNK
     Route: 065

REACTIONS (7)
  - Syncope [Recovered/Resolved]
  - Sinus tachycardia [Recovering/Resolving]
  - Bradycardia [Unknown]
  - Atrioventricular block second degree [Recovered/Resolved]
  - Off label use [Unknown]
  - Fatigue [Unknown]
  - Electrocardiogram PR prolongation [Unknown]
